FAERS Safety Report 15631974 (Version 1)
Quarter: 2018Q4

REPORT INFORMATION
  Report Type: Spontaneous
  Country: GR (occurrence: GR)
  Receive Date: 20181119
  Receipt Date: 20181119
  Transmission Date: 20190205
  Serious: Yes (Death)
  Sender: FDA-Public Use
  Company Number: GR-ALEMBIC PHARMACUETICALS LIMITED-2018SCAL000846

PATIENT

DRUGS (3)
  1. MOCLOBEMIDE [Suspect]
     Active Substance: MOCLOBEMIDE
     Indication: BIPOLAR DISORDER
     Dosage: UNK
  2. CITALOPRAM [Suspect]
     Active Substance: CITALOPRAM HYDROBROMIDE
     Indication: BIPOLAR DISORDER
     Dosage: UNK
  3. FLUOXETINE HYDROCHLORIDE. [Suspect]
     Active Substance: FLUOXETINE HYDROCHLORIDE
     Indication: BIPOLAR DISORDER
     Dosage: UNK

REACTIONS (1)
  - Toxicity to various agents [Fatal]
